FAERS Safety Report 4283021-1 (Version None)
Quarter: 2004Q1

REPORT INFORMATION
  Report Type: 
  Country: None (occurrence: None)
  Receive Date: 20040129
  Receipt Date: 20040116
  Transmission Date: 20041129
  Serious: Yes (Hospitalization, Other)
  Sender: FDA-Public Use
  Company Number: NSADSS2003023624

PATIENT
  Age: 57 Year
  Sex: Female
  Weight: 107.9561 kg

DRUGS (17)
  1. REMICADE [Suspect]
     Indication: RHEUMATOID ARTHRITIS
     Dosage: 600 MG, 1 IN 1 AS NECESSARY, INTRAVENOUS DRIP
     Route: 041
     Dates: start: 20010601, end: 20010601
  2. REMICADE [Suspect]
     Indication: RHEUMATOID ARTHRITIS
     Dosage: 600 MG, 1 IN 1 AS NECESSARY, INTRAVENOUS DRIP
     Route: 041
     Dates: start: 20030307, end: 20030307
  3. PRILOSEC [Concomitant]
  4. FOSAMAX [Concomitant]
  5. CELEBREX [Concomitant]
  6. PREDNISONE [Concomitant]
  7. METHOTREXATE [Concomitant]
  8. PLAQUENIL [Concomitant]
  9. ZOLOFT [Concomitant]
  10. GLUCOSAMINE (GLUCOSAMINE) [Concomitant]
  11. ARAVA [Concomitant]
  12. PREMPRO 14/14 [Concomitant]
  13. FISH OIL (FISH OIL) [Concomitant]
  14. MULTIVITAMIN (MULTIVITAMINS) [Concomitant]
  15. CALCIUM (CALCIUM) [Concomitant]
  16. VITAMIN B (VITAMIN B) [Concomitant]
  17. VITAMIN E [Concomitant]

REACTIONS (6)
  - BLOOD ALBUMIN DECREASED [None]
  - HAEMOGLOBIN DECREASED [None]
  - LEUKAEMOID REACTION [None]
  - METASTASES TO PERITONEUM [None]
  - UTERINE LEIOMYOSARCOMA [None]
  - WEIGHT INCREASED [None]
